FAERS Safety Report 6865373-9 (Version None)
Quarter: 2010Q3

REPORT INFORMATION
  Report Type: 
  Country: None (occurrence: None)
  Receive Date: 20100721
  Receipt Date: 20080419
  Transmission Date: 20110219
  Serious: No
  Sender: FDA-Public Use
  Company Number: US-PFIZER INC-2008035434

PATIENT
  Sex: Male
  Weight: 87.3 kg

DRUGS (6)
  1. CHANTIX [Suspect]
     Indication: SMOKING CESSATION THERAPY
     Dates: start: 20080101
  2. ANTIHYPERTENSIVES [Concomitant]
  3. ANALGESICS [Concomitant]
  4. MUSCLE RELAXANTS [Concomitant]
  5. DRUG, UNSPECIFIED [Concomitant]
  6. ANTITHROMBOTIC AGENTS [Concomitant]

REACTIONS (2)
  - DRY SKIN [None]
  - URTICARIA [None]
